FAERS Safety Report 13274897 (Version 3)
Quarter: 2017Q3

REPORT INFORMATION
  Report Type: Spontaneous
  Country: US (occurrence: US)
  Receive Date: 20170227
  Receipt Date: 20170706
  Transmission Date: 20171127
  Serious: No
  Sender: FDA-Public Use
  Company Number: US-ACTELION-A-US2017-150413

PATIENT
  Age: 75 Year
  Sex: Female
  Weight: 48.73 kg

DRUGS (2)
  1. ADCIRCA [Concomitant]
     Active Substance: TADALAFIL
  2. OPSUMIT [Suspect]
     Active Substance: MACITENTAN
     Indication: PULMONARY ARTERIAL HYPERTENSION
     Dosage: 10 MG, QD
     Route: 048

REACTIONS (5)
  - Lower respiratory tract infection [Unknown]
  - Multiple allergies [Unknown]
  - Dysphonia [Unknown]
  - Croup infectious [Unknown]
  - Diarrhoea [Unknown]
